FAERS Safety Report 10065812 (Version 1)
Quarter: 2014Q2

REPORT INFORMATION
  Report Type: Spontaneous
  Country: US (occurrence: US)
  Receive Date: 20140408
  Receipt Date: 20140408
  Transmission Date: 20141212
  Serious: No
  Sender: FDA-Public Use
  Company Number: US-ASTELLAS-2014US002416

PATIENT
  Sex: Female

DRUGS (3)
  1. VESICARE [Suspect]
     Indication: INCONTINENCE
     Dosage: UNK
     Route: 048
     Dates: start: 2007, end: 2010
  2. VESICARE [Suspect]
     Dosage: 10 MG, UNKNOWN/D
     Route: 048
     Dates: start: 20131214
  3. MYRBETRIQ [Suspect]
     Indication: INCONTINENCE
     Dosage: UNK
     Route: 048
     Dates: end: 201312

REACTIONS (1)
  - Drug ineffective [Unknown]
